FAERS Safety Report 4400695-2 (Version None)
Quarter: 2004Q3

REPORT INFORMATION
  Report Type: 
  Country: None (occurrence: None)
  Receive Date: 20040714
  Receipt Date: 20040625
  Transmission Date: 20050211
  Serious: Yes (Hospitalization)
  Sender: FDA-Public Use
  Company Number: A01200402975

PATIENT
  Age: 54 Year
  Sex: Male

DRUGS (9)
  1. PLAVIX [Suspect]
     Indication: CORONARY ARTERIAL STENT INSERTION
     Dosage: 75 MG QD, ORAL
     Route: 048
     Dates: start: 20031201
  2. STOCRIN - (EFAVIRENZ) - TABLET - 600 MG [Suspect]
     Indication: HIV INFECTION
     Dosage: 600 MG QD ORAL
     Route: 048
     Dates: start: 20010101, end: 20040601
  3. FRAXIPARINE (HEPARIN-FRACTION, CALCIUM SALT) [Concomitant]
  4. LIVEMIR [Concomitant]
  5. ZESTRIL [Concomitant]
  6. CARVEDILOL [Concomitant]
  7. MARCUMAR [Concomitant]
  8. DOXIUM (CALCIUM DOBESILATE) [Concomitant]
  9. MOTILIUM [Concomitant]

REACTIONS (2)
  - DRUG INTERACTION INHIBITION [None]
  - STENT OCCLUSION [None]
